FAERS Safety Report 4711698-2 (Version None)
Quarter: 2005Q3

REPORT INFORMATION
  Report Type: 
  Country: None (occurrence: None)
  Receive Date: 20050708
  Receipt Date: 20050708
  Transmission Date: 20060218
  Serious: Yes (Hospitalization)
  Sender: FDA-Public Use
  Company Number: None

PATIENT
  Sex: Female
  Weight: 95.8 kg

DRUGS (2)
  1. SERTRALINE [Suspect]
     Dosage: 100 MG QHS ORAL
     Route: 048
  2. ZIPRASIDONE [Suspect]
     Dosage: 60MG QD ORAL
     Route: 048

REACTIONS (1)
  - ELECTROCARDIOGRAM QT PROLONGED [None]
